FAERS Safety Report 8476478 (Version 3)
Quarter: 2013Q1

REPORT INFORMATION
  Report Type: Report from Study
  Country: AU (occurrence: AU)
  Receive Date: 20120326
  Receipt Date: 20130228
  Transmission Date: 20140127
  Serious: Yes (Other)
  Sender: FDA-Public Use
  Company Number: AU-GLAXOSMITHKLINE-Z0011585D

PATIENT
  Age: 67 Year
  Sex: Male
  Weight: 78 kg

DRUGS (2)
  1. OFATUMUMAB [Suspect]
     Indication: CHRONIC LYMPHOCYTIC LEUKAEMIA
     Route: 042
     Dates: start: 20110917, end: 20120110
  2. PREDNISOLONE [Concomitant]
     Indication: AUTOIMMUNE THROMBOCYTOPENIA
     Dosage: 7.5MG PER DAY
     Route: 048
     Dates: start: 20120107, end: 20120308

REACTIONS (1)
  - Autoimmune thrombocytopenia [Not Recovered/Not Resolved]
